FAERS Safety Report 9869851 (Version 2)
Quarter: 2014Q1

REPORT INFORMATION
  Report Type: Spontaneous
  Country: US (occurrence: US)
  Receive Date: 20140205
  Receipt Date: 20140219
  Transmission Date: 20141002
  Serious: Yes (Other)
  Sender: FDA-Public Use
  Company Number: US-ASTELLAS-2014US001087

PATIENT
  Age: 73 Year
  Sex: Female

DRUGS (1)
  1. VESICARE [Suspect]
     Indication: PRODUCT USED FOR UNKNOWN INDICATION
     Dosage: 5 MG, UNKNOWN/D
     Route: 048
     Dates: start: 20140108, end: 20140112

REACTIONS (7)
  - Drug ineffective [Unknown]
  - Feeling abnormal [Recovered/Resolved]
  - Impaired work ability [Recovered/Resolved]
  - Impaired driving ability [Recovered/Resolved]
  - Slow speech [Recovered/Resolved]
  - Euphoric mood [Recovered/Resolved]
  - Dry mouth [Recovered/Resolved]
